FAERS Safety Report 8234324-7 (Version None)
Quarter: 2012Q1

REPORT INFORMATION
  Report Type: 
  Country: None (occurrence: None)
  Receive Date: 20120326
  Receipt Date: 20120314
  Transmission Date: 20120608
  Serious: Yes (Hospitalization, Other)
  Sender: FDA-Public Use
  Company Number: US-JNJFOC-20120206619

PATIENT
  Sex: Female
  Weight: 56.7 kg

DRUGS (14)
  1. AZITHROMYCIN [Suspect]
     Indication: UPPER RESPIRATORY TRACT INFECTION
     Route: 065
  2. PREDNISONE TAB [Concomitant]
     Route: 048
  3. PRILOSEC [Concomitant]
     Indication: GASTROOESOPHAGEAL REFLUX DISEASE
     Route: 048
  4. PREDNISONE TAB [Concomitant]
     Indication: PRODUCT USED FOR UNKNOWN INDICATION
     Route: 048
  5. OMEPRAZOLE [Concomitant]
     Route: 048
  6. NYSTATIN [Concomitant]
     Route: 048
  7. PROGESTERONE [Concomitant]
     Route: 065
  8. BIOIDENTICAL HORMONES [Concomitant]
     Route: 065
  9. ALL OTHER THERAPEUTICS [Concomitant]
     Indication: PRODUCT USED FOR UNKNOWN INDICATION
     Route: 065
  10. TESTOSTERONE [Concomitant]
  11. ALL OTHER THERAPEUTIC PRODUCT [Concomitant]
     Route: 048
  12. ESTROGEN [Concomitant]
     Route: 065
  13. PRILOSEC [Concomitant]
     Indication: PRODUCT USED FOR UNKNOWN INDICATION
     Route: 065
  14. LEVAQUIN [Suspect]
     Indication: UPPER RESPIRATORY TRACT INFECTION
     Route: 048
     Dates: start: 20110621, end: 20110625

REACTIONS (13)
  - DRUG INEFFECTIVE [None]
  - COUGH [None]
  - DRUG HYPERSENSITIVITY [None]
  - DEHYDRATION [None]
  - ANAEMIA [None]
  - METABOLIC ACIDOSIS [None]
  - FATIGUE [None]
  - LEUKOCYTOSIS [None]
  - DYSGEUSIA [None]
  - WEIGHT DECREASED [None]
  - ORAL CANDIDIASIS [None]
  - RENAL FAILURE ACUTE [None]
  - TUBULOINTERSTITIAL NEPHRITIS [None]
